FAERS Safety Report 10940073 (Version 2)
Quarter: 2015Q2

REPORT INFORMATION
  Report Type: Spontaneous
  Country: US (occurrence: US)
  Receive Date: 20150322
  Receipt Date: 20150525
  Transmission Date: 20150821
  Serious: No
  Sender: FDA-Public Use
  Company Number: US-JNJFOC-20141115132

PATIENT
  Age: 37 Year
  Sex: Female
  Weight: 68.04 kg

DRUGS (4)
  1. OXYCODONE [Concomitant]
     Active Substance: OXYCODONE
     Indication: BACK PAIN
     Dosage: 5 MG OR 10 MG UPTO 4 TIMES A DAY
     Route: 048
     Dates: start: 201103
  2. EXALGO [Concomitant]
     Active Substance: HYDROMORPHONE HYDROCHLORIDE
     Indication: BACK PAIN
     Dosage: 12 MG ONCE A DAY
     Route: 048
     Dates: start: 201203
  3. AMITIZA [Concomitant]
     Active Substance: LUBIPROSTONE
     Indication: CONSTIPATION
     Dosage: 24 MCG TWICE DAILY
     Route: 048
     Dates: start: 201103
  4. NUCYNTA ER [Suspect]
     Active Substance: TAPENTADOL HYDROCHLORIDE
     Indication: BACK PAIN
     Route: 048
     Dates: start: 201201

REACTIONS (1)
  - Drug screen positive [Not Recovered/Not Resolved]

NARRATIVE: CASE EVENT DATE: 201408
